FAERS Safety Report 23507159 (Version 1)
Quarter: 2024Q1

REPORT INFORMATION
  Report Type: Report from Study
  Country: DE (occurrence: DE)
  Receive Date: 20240209
  Receipt Date: 20240209
  Transmission Date: 20240410
  Serious: Yes (Other)
  Sender: FDA-Public Use
  Company Number: DE-UCBSA-2023047300

PATIENT
  Age: 39 Year
  Sex: Male
  Weight: 72 kg

DRUGS (1)
  1. BIMEKIZUMAB [Suspect]
     Active Substance: BIMEKIZUMAB
     Indication: Psoriasis
     Dosage: 320 MILLIGRAM, EV 8 WEEKS
     Dates: start: 20221013

REACTIONS (5)
  - Periodontitis [Recovered/Resolved with Sequelae]
  - Gingival operation [Recovered/Resolved with Sequelae]
  - Bone sequestrum [Unknown]
  - Sequestrectomy [Unknown]
  - Bone graft [Unknown]

NARRATIVE: CASE EVENT DATE: 20230622
